FAERS Safety Report 19447651 (Version 1)
Quarter: 2021Q2

REPORT INFORMATION
  Report Type: Spontaneous
  Country: US (occurrence: US)
  Receive Date: 20210622
  Receipt Date: 20210622
  Transmission Date: 20210717
  Serious: No
  Sender: FDA-Public Use
  Company Number: US-THERAPEUTICSMD-2021TMD01331

PATIENT
  Sex: Female
  Weight: 88.44 kg

DRUGS (3)
  1. UNSPECIFIED BLOOD PRESSURE MEDICINE [Concomitant]
     Active Substance: UNSPECIFIED INGREDIENT
  2. IMVEXXY [Suspect]
     Active Substance: ESTRADIOL
     Indication: POSTMENOPAUSE
     Dosage: 10 ?G EVERY 5 OR 6 DAYS
     Route: 067
     Dates: start: 202005
  3. UNSPECIFIED SUPPLEMENTS [Concomitant]
     Active Substance: UNSPECIFIED INGREDIENT

REACTIONS (4)
  - Thyroid mass [Unknown]
  - Off label use [Not Recovered/Not Resolved]
  - Pulmonary mass [Recovered/Resolved]
  - COVID-19 [Unknown]

NARRATIVE: CASE EVENT DATE: 2020
